FAERS Safety Report 9872844 (Version 1)
Quarter: 2014Q1

REPORT INFORMATION
  Report Type: Report from Study
  Country: PT (occurrence: PT)
  Receive Date: 20140206
  Receipt Date: 20140206
  Transmission Date: 20141002
  Serious: Yes (Life-Threatening, Hospitalization)
  Sender: FDA-Public Use
  Company Number: PT-ROCHE-1343960

PATIENT
  Age: 81 Year
  Sex: Female
  Weight: 43 kg

DRUGS (4)
  1. RANIBIZUMAB [Suspect]
     Indication: AGE-RELATED MACULAR DEGENERATION
     Route: 050
     Dates: start: 20080418
  2. LEXOTAN [Concomitant]
     Indication: ANXIETY
     Route: 065
     Dates: start: 2008
  3. BETASERC [Concomitant]
     Indication: VERTIGO
     Route: 065
     Dates: start: 2007
  4. PLAVIX [Concomitant]
     Route: 065
     Dates: start: 2008

REACTIONS (1)
  - Myocardial infarction [Recovered/Resolved]
